FAERS Safety Report 6696054-2 (Version None)
Quarter: 2010Q2

REPORT INFORMATION
  Report Type: 
  Country: None (occurrence: None)
  Receive Date: 20100426
  Receipt Date: 20100413
  Transmission Date: 20101027
  Serious: Yes (Hospitalization)
  Sender: FDA-Public Use
  Company Number: JP-AMGEN-US406471

PATIENT
  Sex: Male

DRUGS (1)
  1. ENBREL [Suspect]
     Indication: RHEUMATOID ARTHRITIS
     Dosage: UNKNOWN
     Route: 058
     Dates: end: 20100413

REACTIONS (5)
  - ARTHRALGIA [None]
  - NASOPHARYNGITIS [None]
  - PAIN [None]
  - PHARYNGEAL OEDEMA [None]
  - PYREXIA [None]
